FAERS Safety Report 9499459 (Version 1)
Quarter: 2013Q1

REPORT INFORMATION
  Report Type: Spontaneous
  Country: US (occurrence: None)
  Receive Date: 20130107
  Receipt Date: 20130107
  Transmission Date: 20140127
  Serious: No
  Sender: FDA-Public Use
  Company Number: PHEH2012US022099

PATIENT
  Sex: Female
  Weight: 62.1 kg

DRUGS (3)
  1. GILENYA [Suspect]
     Route: 048
  2. LACTULOSE (LACTULOSE) [Concomitant]
  3. FAMPRIDINE (FAMPRIDINE) [Concomitant]

REACTIONS (4)
  - Decreased appetite [None]
  - Constipation [None]
  - Weight decreased [None]
  - Back pain [None]
